FAERS Safety Report 25081335 (Version 2)
Quarter: 2025Q1

REPORT INFORMATION
  Report Type: Spontaneous
  Country: US (occurrence: US)
  Receive Date: 20250316
  Receipt Date: 20250331
  Transmission Date: 20250408
  Serious: Yes (Hospitalization)
  Sender: SANOFI AVENTIS
  Company Number: US-SA-2025SA074119

PATIENT
  Age: 68 Year
  Sex: Female

DRUGS (2)
  1. DUPIXENT [Suspect]
     Active Substance: DUPILUMAB
     Indication: Chronic obstructive pulmonary disease
     Dosage: 300 MG, QOW
     Route: 058
     Dates: start: 20241209
  2. TYLENOL [Concomitant]
     Active Substance: ACETAMINOPHEN
     Indication: Pulmonary pain

REACTIONS (12)
  - Influenza [Recovered/Resolved]
  - Pain [Recovered/Resolved]
  - Back pain [Recovering/Resolving]
  - Fatigue [Recovering/Resolving]
  - Therapeutic response shortened [Unknown]
  - Dyspnoea [Unknown]
  - Oxygen saturation decreased [Recovered/Resolved]
  - Musculoskeletal discomfort [Unknown]
  - Bronchitis [Recovering/Resolving]
  - Skin exfoliation [Not Recovered/Not Resolved]
  - Erythema [Not Recovered/Not Resolved]
  - Rash [Recovering/Resolving]

NARRATIVE: CASE EVENT DATE: 20241201
